FAERS Safety Report 24033784 (Version 1)
Quarter: 2024Q3

REPORT INFORMATION
  Report Type: Spontaneous
  Country: ES (occurrence: ES)
  Receive Date: 20240701
  Receipt Date: 20240701
  Transmission Date: 20241016
  Serious: Yes (Hospitalization)
  Sender: AUROBINDO
  Company Number: ES-EMA-DD-20240621-7482711-120716

PATIENT
  Age: 88 Year
  Sex: Female

DRUGS (2)
  1. HYDROCHLOROTHIAZIDE [Interacting]
     Active Substance: HYDROCHLOROTHIAZIDE
     Indication: Hypertension
     Dosage: 25 MILLIGRAM, ONCE A DAY, 25MG EVERY 24 HOURS
     Route: 048
     Dates: start: 20180627, end: 20180720
  2. CALCIUM CARBONATE [Interacting]
     Active Substance: CALCIUM CARBONATE
     Indication: Thyroid cancer
     Dosage: 1 DOSAGE FORM, 3 TIMES A DAY, 1 ABOUT EVERY 8 HOURS
     Route: 048
     Dates: start: 20100217

REACTIONS (1)
  - Hypercalcaemia [Recovered/Resolved]

NARRATIVE: CASE EVENT DATE: 20180720
